FAERS Safety Report 8920191 (Version 1)
Quarter: 2012Q4

REPORT INFORMATION
  Report Type: 
  Country: US (occurrence: US)
  Receive Date: 20121122
  Receipt Date: 20121122
  Transmission Date: 20130627
  Serious: Yes (Death)
  Sender: FDA-Public Use
  Company Number: US-ROCHE-1126035

PATIENT
  Sex: Male

DRUGS (4)
  1. AVASTIN [Suspect]
     Indication: LUNG NEOPLASM MALIGNANT
     Route: 065
  2. MS CONTIN [Concomitant]
     Dosage: unknown
     Route: 065
  3. MS CONTIN [Concomitant]
     Dosage: dose reduced
     Route: 065
  4. DILAUDID [Concomitant]

REACTIONS (4)
  - Loose tooth [Unknown]
  - Toothache [Unknown]
  - Pain [Recovering/Resolving]
  - Lung neoplasm malignant [Fatal]
